FAERS Safety Report 11037942 (Version 1)
Quarter: 2015Q2

REPORT INFORMATION
  Report Type: Spontaneous
  Country: US (occurrence: US)
  Receive Date: 20150416
  Receipt Date: 20150416
  Transmission Date: 20150821
  Serious: No
  Sender: FDA-Public Use
  Company Number: US-PFIZER INC-2015125688

PATIENT
  Age: 40 Year
  Sex: Female
  Weight: 94 kg

DRUGS (1)
  1. LYRICA [Suspect]
     Active Substance: PREGABALIN
     Indication: PAIN IN EXTREMITY
     Dosage: 50 MG, 1X/DAY

REACTIONS (7)
  - Drug hypersensitivity [Unknown]
  - Contusion [Unknown]
  - Rash [Unknown]
  - Blister [Unknown]
  - Diarrhoea [Unknown]
  - Hypertension [Unknown]
  - Blood cholesterol increased [Unknown]
